FAERS Safety Report 25623069 (Version 1)
Quarter: 2025Q3

REPORT INFORMATION
  Report Type: Spontaneous
  Country: US (occurrence: None)
  Receive Date: 20250730
  Receipt Date: 20250730
  Transmission Date: 20251020
  Serious: Yes (Other)
  Sender: FDA-CTU
  Company Number: None

PATIENT
  Age: 50 Year
  Sex: Female
  Weight: 74.25 kg

DRUGS (4)
  1. HERBALS\MITRAGYNINE [Suspect]
     Active Substance: HERBALS\MITRAGYNINE
     Indication: Anxiety
     Dosage: FREQUENCY : AT BEDTIME;?
     Route: 048
     Dates: start: 20240817, end: 20240817
  2. gabapentin 200MG [Concomitant]
  3. VITAMINS [Concomitant]
     Active Substance: VITAMINS
  4. KRILL OIL [Concomitant]
     Active Substance: DIETARY SUPPLEMENT\KRILL OIL

REACTIONS (4)
  - Dyspnoea [None]
  - Palpitations [None]
  - Hypertension [None]
  - Heart rate increased [None]

NARRATIVE: CASE EVENT DATE: 20240818
